FAERS Safety Report 7273552-4 (Version None)
Quarter: 2011Q1

REPORT INFORMATION
  Report Type: 
  Country: None (occurrence: None)
  Receive Date: 20110203
  Receipt Date: 20100818
  Transmission Date: 20110831
  Serious: No
  Sender: FDA-Public Use
  Company Number: US-ABBOTT-10P-163-0666336-00

PATIENT
  Sex: Female
  Weight: 63.56 kg

DRUGS (14)
  1. HYDROXYZINE [Concomitant]
     Indication: PRURITUS
  2. REQUIP [Concomitant]
     Indication: RESTLESS LEGS SYNDROME
  3. PRILOSEC [Concomitant]
     Indication: ABDOMINAL DISCOMFORT
  4. CARISOPRODOL [Concomitant]
     Indication: MUSCLE RELAXANT THERAPY
  5. DARVOCET-N 100 [Concomitant]
     Indication: PAIN
  6. PRAZOLAM [Concomitant]
     Indication: ANXIETY
  7. SYNTHROID [Suspect]
     Indication: HYPOTHYROIDISM
     Dates: start: 19900101, end: 20100401
  8. SYNTHROID [Suspect]
     Dates: start: 20100401, end: 20100501
  9. SYNTHROID [Suspect]
     Dates: start: 20100601
  10. WELLBUTRIN [Concomitant]
     Indication: DEPRESSION
  11. LISINOPRIL [Concomitant]
     Indication: HYPERTENSION
  12. CYMBALTA [Concomitant]
     Indication: FIBROMYALGIA
  13. CYCLOBENZAPRINE [Concomitant]
     Indication: MUSCLE RELAXANT THERAPY
  14. AMBIEN [Concomitant]
     Indication: INSOMNIA

REACTIONS (4)
  - FEELING ABNORMAL [None]
  - ABDOMINAL DISCOMFORT [None]
  - ALOPECIA [None]
  - AGGRESSION [None]
